FAERS Safety Report 4714673-7 (Version None)
Quarter: 2005Q3

REPORT INFORMATION
  Report Type: 
  Country: None (occurrence: None)
  Receive Date: 20050715
  Receipt Date: 20050704
  Transmission Date: 20060218
  Serious: Yes (Other)
  Sender: FDA-Public Use
  Company Number: FR-ABBOTT-05P-056-0304958-00

PATIENT
  Age: 23 Year
  Sex: Male

DRUGS (3)
  1. DEPAKOTE [Suspect]
     Indication: DRUG USE FOR UNKNOWN INDICATION
     Route: 048
     Dates: start: 20050615, end: 20050622
  2. CYAMEMAZINE [Interacting]
     Indication: DRUG USE FOR UNKNOWN INDICATION
     Route: 065
  3. HALOPERIDOL [Interacting]
     Indication: DRUG USE FOR UNKNOWN INDICATION
     Route: 065

REACTIONS (4)
  - DEPRESSED LEVEL OF CONSCIOUSNESS [None]
  - DISORIENTATION [None]
  - DRUG INTERACTION [None]
  - HYPERAMMONAEMIA [None]
